FAERS Safety Report 10145884 (Version 1)
Quarter: 2014Q2

REPORT INFORMATION
  Report Type: Report from Study
  Country: US (occurrence: US)
  Receive Date: 20140501
  Receipt Date: 20140501
  Transmission Date: 20141212
  Serious: No
  Sender: FDA-Public Use
  Company Number: US-ABBVIE-13P-163-1085037-00

PATIENT
  Age: 77 Year
  Sex: Female

DRUGS (8)
  1. CREON [Suspect]
     Indication: PANCREATICODUODENECTOMY
     Dosage: ONCE CAPSULE WITH MEALS
     Dates: start: 201206
  2. METFORMIN [Concomitant]
     Indication: DIABETES MELLITUS
  3. GLYPIZIDE [Concomitant]
     Indication: DIABETES MELLITUS
  4. COREG [Concomitant]
     Indication: PRODUCT USED FOR UNKNOWN INDICATION
  5. FOLIC ACID [Concomitant]
     Indication: PRODUCT USED FOR UNKNOWN INDICATION
  6. OMEPRAZOLE [Concomitant]
     Indication: PRODUCT USED FOR UNKNOWN INDICATION
  7. LISINOPRIL [Concomitant]
     Indication: PRODUCT USED FOR UNKNOWN INDICATION
  8. HYDROCHLOROTHIAZIDE [Concomitant]
     Indication: PRODUCT USED FOR UNKNOWN INDICATION

REACTIONS (2)
  - Blood glucose increased [Recovered/Resolved]
  - Dizziness [Recovered/Resolved]
